FAERS Safety Report 19226378 (Version 1)
Quarter: 2021Q2

REPORT INFORMATION
  Report Type: Report from Study
  Country: US (occurrence: US)
  Receive Date: 20210506
  Receipt Date: 20210506
  Transmission Date: 20210717
  Serious: Yes (Hospitalization)
  Sender: FDA-Public Use
  Company Number: US-ENDO PHARMACEUTICALS INC-2021-002717

PATIENT
  Sex: Male
  Weight: 119.5 kg

DRUGS (19)
  1. COREG [Concomitant]
     Active Substance: CARVEDILOL
     Indication: PRODUCT USED FOR UNKNOWN INDICATION
     Dosage: UNK UNKNOWN, UNKNOWN
     Route: 065
     Dates: start: 2011
  2. FOSTEMSAVIR [Concomitant]
     Active Substance: FOSTEMSAVIR
     Indication: PRODUCT USED FOR UNKNOWN INDICATION
     Dosage: UNK UNKNOWN, UNKNOWN
     Route: 065
     Dates: start: 20201101
  3. GS?6207 VS PLACEBO + GS?6207 (LENACAPAVIR) TABLET [Concomitant]
     Indication: HIV INFECTION
     Dosage: 927 MG, DAILY
     Route: 058
     Dates: start: 20210412, end: 20210412
  4. TRAZODONE [Concomitant]
     Active Substance: TRAZODONE HYDROCHLORIDE
     Indication: PRODUCT USED FOR UNKNOWN INDICATION
     Dosage: UNK UNKNOWN, UNK
     Route: 065
     Dates: start: 20190318
  5. LISINOPRIL. [Concomitant]
     Active Substance: LISINOPRIL
     Indication: PRODUCT USED FOR UNKNOWN INDICATION
     Dosage: UNK UNKNOWN, UNKNOWN
     Route: 065
     Dates: start: 202101
  6. DORAVIRINE [Concomitant]
     Active Substance: DORAVIRINE
     Indication: PRODUCT USED FOR UNKNOWN INDICATION
     Dosage: UNK UNKNOWN, UNKNOWN
     Route: 065
     Dates: start: 201812
  7. PERCOCET [Suspect]
     Active Substance: ACETAMINOPHEN\OXYCODONE HYDROCHLORIDE
     Indication: PROCTALGIA
     Dosage: UNK UNKNOWN, UNK
     Route: 048
     Dates: start: 202101
  8. GS?6207 VS PLACEBO + GS?6207 (LENACAPAVIR) TABLET [Concomitant]
     Dosage: 300 MG, DAILY
     Route: 048
     Dates: start: 20200413, end: 20200413
  9. VALTREX [Concomitant]
     Active Substance: VALACYCLOVIR HYDROCHLORIDE
     Indication: PRODUCT USED FOR UNKNOWN INDICATION
     Dosage: UNK UNKNOWN, UNK
     Route: 065
     Dates: start: 201009
  10. GS?6207 VS PLACEBO + GS?6207 (LENACAPAVIR) TABLET [Concomitant]
     Dosage: 600 MG, DAILY
     Route: 048
     Dates: start: 20200407, end: 20200407
  11. DIFLUCAN [Concomitant]
     Active Substance: FLUCONAZOLE
     Indication: PRODUCT USED FOR UNKNOWN INDICATION
     Dosage: UNK UNKNOWN, UNK
     Route: 065
     Dates: start: 20200911
  12. LOMOTIL [Concomitant]
     Active Substance: ATROPINE SULFATE\DIPHENOXYLATE HYDROCHLORIDE
     Indication: PRODUCT USED FOR UNKNOWN INDICATION
     Dosage: UNK UNKNOWN, UNKNOWN
     Route: 065
     Dates: start: 1999
  13. NORVASC [Concomitant]
     Active Substance: AMLODIPINE BESYLATE
     Indication: PRODUCT USED FOR UNKNOWN INDICATION
     Dosage: UNK UNKNOWN, UNKNOWN
     Route: 065
     Dates: start: 201608, end: 202101
  14. LYRICA [Suspect]
     Active Substance: PREGABALIN
     Indication: PRODUCT USED FOR UNKNOWN INDICATION
     Dosage: UNK UNKNOWN, UNK
     Route: 065
     Dates: start: 202101
  15. GS?6207 VS PLACEBO + GS?6207 (LENACAPAVIR) TABLET [Concomitant]
     Dosage: 927 MG, DAILY
     Route: 058
     Dates: start: 20200420, end: 20200420
  16. BIKTARVY [Concomitant]
     Active Substance: BICTEGRAVIR SODIUM\EMTRICITABINE\TENOFOVIR ALAFENAMIDE FUMARATE
     Indication: PRODUCT USED FOR UNKNOWN INDICATION
     Dosage: UNK UNKNOWN, UNK
     Route: 065
     Dates: start: 20180525
  17. IBALIZUMAB [Concomitant]
     Active Substance: IBALIZUMAB
     Indication: PRODUCT USED FOR UNKNOWN INDICATION
     Dosage: UNK UNKNOWN, UNKNOWN
     Route: 065
     Dates: start: 201808
  18. GS?6207 VS PLACEBO + GS?6207 (LENACAPAVIR) TABLET [Concomitant]
     Dosage: 927 MG, DAILY
     Route: 058
     Dates: start: 20201026, end: 20201026
  19. GS?6207 VS PLACEBO + GS?6207 (LENACAPAVIR) TABLET [Concomitant]
     Dosage: 600 MG, DAILY
     Route: 048
     Dates: start: 20210406, end: 20210406

REACTIONS (2)
  - Condition aggravated [Recovered/Resolved]
  - Proctalgia [Recovered/Resolved]

NARRATIVE: CASE EVENT DATE: 20210118
